FAERS Safety Report 4276417-5 (Version None)
Quarter: 2004Q1

REPORT INFORMATION
  Report Type: 
  Country: None (occurrence: None)
  Receive Date: 20040121
  Receipt Date: 20031218
  Transmission Date: 20041129
  Serious: Yes (Death, Hospitalization, Other)
  Sender: FDA-Public Use
  Company Number: GB-BRISTOL-MYERS SQUIBB COMPANY-12460341

PATIENT
  Age: 24 Year
  Sex: Female
  Weight: 60 kg

DRUGS (6)
  1. ACETYLSALICYLIC ACID SRT [Suspect]
     Route: 048
     Dates: start: 20031122, end: 20031122
  2. ATENOLOL [Suspect]
     Route: 048
     Dates: start: 20031122, end: 20031122
  3. ANADIN PARACETAMOL [Suspect]
     Route: 048
     Dates: start: 20031122, end: 20031122
  4. EFFEXOR [Suspect]
     Dosage: DOSE VALUE:  75-150 MG
     Route: 048
     Dates: start: 20010403, end: 20031122
  5. SERTRALINE HCL [Suspect]
     Route: 048
     Dates: start: 20031122, end: 20031122
  6. ALCOHOL [Suspect]
     Route: 048
     Dates: start: 20031122

REACTIONS (20)
  - AGITATION [None]
  - ALCOHOL USE [None]
  - CARDIAC ARREST [None]
  - COMPLETED SUICIDE [None]
  - CYANOSIS [None]
  - DEPRESSED LEVEL OF CONSCIOUSNESS [None]
  - DISORIENTATION [None]
  - FEELING ABNORMAL [None]
  - GRAND MAL CONVULSION [None]
  - HYPOTENSION [None]
  - INTENTIONAL OVERDOSE [None]
  - MALAISE [None]
  - MULTIPLE DRUG OVERDOSE [None]
  - NAUSEA [None]
  - PERIPHERAL COLDNESS [None]
  - PERSONALITY DISORDER [None]
  - RETCHING [None]
  - SEROTONIN SYNDROME [None]
  - TACHYCARDIA [None]
  - VENTRICULAR TACHYCARDIA [None]
